FAERS Safety Report 6261000-2 (Version None)
Quarter: 2009Q3

REPORT INFORMATION
  Report Type: 
  Country: None (occurrence: None)
  Receive Date: 20090709
  Receipt Date: 20090630
  Transmission Date: 20100115
  Serious: Yes (Hospitalization)
  Sender: FDA-Public Use
  Company Number: US-BIOGENIDEC-2009BI006439

PATIENT
  Age: 27 Year
  Sex: Female

DRUGS (2)
  1. AVONEX [Suspect]
     Indication: MULTIPLE SCLEROSIS
     Route: 030
     Dates: start: 20050422
  2. AVONEX [Suspect]
     Route: 030
     Dates: end: 20090531

REACTIONS (3)
  - HYPOAESTHESIA [None]
  - MULTIPLE SCLEROSIS RELAPSE [None]
  - OPTIC NEURITIS [None]
